APPROVED DRUG PRODUCT: KEFUROX
Active Ingredient: CEFUROXIME SODIUM
Strength: EQ 750MG BASE/VIAL
Dosage Form/Route: INJECTABLE;INTRAVENOUS
Application: A062592 | Product #001
Applicant: ELI LILLY AND CO
Approved: Jan 10, 1986 | RLD: No | RS: No | Type: DISCN